FAERS Safety Report 5511585-6 (Version None)
Quarter: 2007Q4

REPORT INFORMATION
  Report Type: 
  Country: None (occurrence: None)
  Receive Date: 20071109
  Receipt Date: 20071106
  Transmission Date: 20080405
  Serious: Yes (Death)
  Sender: FDA-Public Use
  Company Number: AU-ASTRAZENECA-2007AP07061

PATIENT
  Age: 32 Year
  Sex: Male

DRUGS (3)
  1. SEROQUEL [Suspect]
     Indication: SCHIZOPHRENIA
     Route: 048
  2. ZYPREXA [Concomitant]
     Dosage: FOR MANY YEARS
  3. DIAZEPAM [Concomitant]

REACTIONS (2)
  - COMPLETED SUICIDE [None]
  - WEIGHT DECREASED [None]
